FAERS Safety Report 17158672 (Version 1)
Quarter: 2019Q4

REPORT INFORMATION
  Report Type: Spontaneous
  Country: FR (occurrence: FR)
  Receive Date: 20191216
  Receipt Date: 20191216
  Transmission Date: 20200122
  Serious: Yes (Hospitalization, Other)
  Sender: FDA-Public Use
  Company Number: NVSC2019FR069470

PATIENT

DRUGS (2)
  1. BREXIN [PIROXICAM BETADEX] [Suspect]
     Active Substance: PIROXICAM BETADEX
     Indication: BACK PAIN
     Dosage: UNK
     Route: 048
     Dates: start: 20191001
  2. VOLTAREN [Suspect]
     Active Substance: DICLOFENAC SODIUM
     Indication: BACK PAIN
     Dosage: UNK
     Route: 048
     Dates: start: 20191001

REACTIONS (3)
  - Toxic skin eruption [Recovering/Resolving]
  - Drug reaction with eosinophilia and systemic symptoms [Recovering/Resolving]
  - Eosinophilia [Recovering/Resolving]

NARRATIVE: CASE EVENT DATE: 20191018
